FAERS Safety Report 19419948 (Version 2)
Quarter: 2022Q1

REPORT INFORMATION
  Report Type: Other
  Country: US (occurrence: None)
  Receive Date: 20210616
  Receipt Date: 20220202
  Transmission Date: 20220423
  Serious: Yes (Other)
  Sender: FDA-Public Use
  Company Number: US-ROCHE-2849748

PATIENT
  Age: 74 Year
  Sex: Female
  Weight: 55.842 kg

DRUGS (1)
  1. ALECENSA [Suspect]
     Active Substance: ALECTINIB HYDROCHLORIDE
     Indication: Lung neoplasm malignant
     Dosage: TAKE 4 CAPSULE(S) BY MOUTH TWICE A DAY
     Route: 048

REACTIONS (9)
  - Cerebrovascular accident [Not Recovered/Not Resolved]
  - Pulmonary thrombosis [Recovered/Resolved]
  - Hypoaesthesia [Unknown]
  - Speech disorder [Unknown]
  - Dysphemia [Not Recovered/Not Resolved]
  - Cerebral disorder [Unknown]
  - Bone pain [Unknown]
  - Swelling [Unknown]
  - Haemoglobin decreased [Unknown]

NARRATIVE: CASE EVENT DATE: 20210101
